FAERS Safety Report 13152581 (Version 2)
Quarter: 2017Q1

REPORT INFORMATION
  Report Type: Spontaneous
  Country: US (occurrence: US)
  Receive Date: 20170125
  Receipt Date: 20170206
  Transmission Date: 20170428
  Serious: Yes (Hospitalization, Other)
  Sender: FDA-Public Use
  Company Number: US-BEH-2017077596

PATIENT
  Sex: Female
  Weight: 53.97 kg

DRUGS (18)
  1. MULTIVITAMINS [Concomitant]
     Active Substance: VITAMINS
  2. HIZENTRA [Suspect]
     Active Substance: HUMAN IMMUNOGLOBULIN G
     Indication: IMMUNODEFICIENCY COMMON VARIABLE
     Dosage: 6 G, QW
     Route: 058
     Dates: start: 20110131
  3. CELEBREX [Concomitant]
     Active Substance: CELECOXIB
  4. ALLEGRA [Concomitant]
     Active Substance: FEXOFENADINE HYDROCHLORIDE
  5. DOXYCYCLINE. [Concomitant]
     Active Substance: DOXYCYCLINE
  6. VITAMIN D                          /00107901/ [Concomitant]
     Active Substance: ERGOCALCIFEROL
  7. VALACYCLOVIR [Concomitant]
     Active Substance: VALACYCLOVIR HYDROCHLORIDE
  8. SYNTHROID [Concomitant]
     Active Substance: LEVOTHYROXINE SODIUM
  9. HIZENTRA [Suspect]
     Active Substance: HUMAN IMMUNOGLOBULIN G
     Dosage: UNK
     Route: 058
  10. PREMARIN [Concomitant]
     Active Substance: ESTROGENS, CONJUGATED
  11. LMX                                /00033401/ [Concomitant]
  12. HYDROCODONE W/APAP                 /00607101/ [Concomitant]
  13. LOSARTAN. [Concomitant]
     Active Substance: LOSARTAN
  14. CALCIUM [Concomitant]
     Active Substance: CALCIUM
  15. HIZENTRA [Suspect]
     Active Substance: HUMAN IMMUNOGLOBULIN G
     Dosage: UNK
     Route: 058
  16. DIPHENHYDRAMINE. [Concomitant]
     Active Substance: DIPHENHYDRAMINE
  17. EPIPEN [Concomitant]
     Active Substance: EPINEPHRINE
  18. APRISO [Concomitant]
     Active Substance: MESALAMINE

REACTIONS (2)
  - Breast cancer [Unknown]
  - Bronchitis [Unknown]
